FAERS Safety Report 5835415-8 (Version None)
Quarter: 2008Q3

REPORT INFORMATION
  Report Type: 
  Country: None (occurrence: None)
  Receive Date: 20080804
  Receipt Date: 20080724
  Transmission Date: 20090109
  Serious: Yes (Hospitalization, Other)
  Sender: FDA-Public Use
  Company Number: 19865

PATIENT
  Age: 61 Year
  Sex: Female

DRUGS (1)
  1. METHOTREXATE [Suspect]
     Indication: RHEUMATOID ARTHRITIS

REACTIONS (3)
  - CHRONIC SINUSITIS [None]
  - DIFFUSE LARGE B-CELL LYMPHOMA STAGE III [None]
  - EPSTEIN-BARR VIRUS INFECTION [None]
